FAERS Safety Report 12712018 (Version 2)
Quarter: 2016Q3

REPORT INFORMATION
  Report Type: Spontaneous
  Country: US (occurrence: JP)
  Receive Date: 20160902
  Receipt Date: 20160908
  Transmission Date: 20161109
  Serious: Yes (Hospitalization, Disabling, Other)
  Sender: FDA-Public Use
  Company Number: JP-FRI-1000087076

PATIENT
  Age: 50 Year
  Sex: Female

DRUGS (9)
  1. QUETIAPINE FUMARATE. [Suspect]
     Active Substance: QUETIAPINE FUMARATE
     Dosage: 300 MG
     Route: 048
     Dates: start: 20160726
  2. TANDOSPIRONE CITRATE [Concomitant]
     Active Substance: TANDOSPIRONE CITRATE
     Dates: start: 20160707, end: 20160715
  3. ASENAPINE [Suspect]
     Active Substance: ASENAPINE
     Indication: SCHIZOPHRENIA
     Dosage: 10 MG
     Route: 060
     Dates: start: 20160714, end: 20160715
  4. LEXAPRO [Suspect]
     Active Substance: ESCITALOPRAM OXALATE
     Indication: GENERALISED ANXIETY DISORDER
     Dosage: 20 MG
     Route: 048
     Dates: start: 20160616, end: 20160715
  5. QUETIAPINE FUMARATE. [Suspect]
     Active Substance: QUETIAPINE FUMARATE
     Indication: SCHIZOPHRENIA
     Dosage: 100 MG
     Route: 048
     Dates: start: 20160704
  6. SUVOREXANT. [Concomitant]
     Active Substance: SUVOREXANT
     Dates: start: 20160620
  7. QUETIAPINE FUMARATE. [Suspect]
     Active Substance: QUETIAPINE FUMARATE
     Dosage: 175 MG
     Route: 048
     Dates: start: 20160706, end: 20160714
  8. BROTIZOLAM [Concomitant]
     Active Substance: BROTIZOLAM
     Dates: start: 2016
  9. YOKU-KAN-SAN [Concomitant]
     Dates: start: 20160609

REACTIONS (4)
  - Oculogyric crisis [Recovered/Resolved]
  - Vomiting [Recovered/Resolved]
  - Protrusion tongue [Recovered/Resolved]
  - Seizure [Recovered/Resolved]

NARRATIVE: CASE EVENT DATE: 20160715
